FAERS Safety Report 5405014-0 (Version None)
Quarter: 2007Q3

REPORT INFORMATION
  Report Type: 
  Country: None (occurrence: None)
  Receive Date: 20070801
  Receipt Date: 20070716
  Transmission Date: 20080115
  Serious: Yes (Other)
  Sender: FDA-Public Use
  Company Number: DSA_02679_2007

PATIENT

DRUGS (1)
  1. VANIQA [Suspect]
     Indication: DRUG USE FOR UNKNOWN INDICATION
     Dosage: DF TOPICAL
     Route: 061
     Dates: start: 20060101

REACTIONS (2)
  - BREAST CANCER FEMALE [None]
  - OESTROGEN RECEPTOR ASSAY POSITIVE [None]
